FAERS Safety Report 9185879 (Version 4)
Quarter: 2013Q2

REPORT INFORMATION
  Report Type: Report from Study
  Country: US (occurrence: US)
  Receive Date: 20130325
  Receipt Date: 20130607
  Transmission Date: 20140414
  Serious: Yes (Hospitalization)
  Sender: FDA-Public Use
  Company Number: US-PFIZER INC-2012088483

PATIENT
  Age: 62 Year
  Sex: Female
  Weight: 70 kg

DRUGS (10)
  1. TOFACITINIB CITRATE [Suspect]
     Indication: RHEUMATOID ARTHRITIS
     Dosage: 2 TABLETS IN THE MORNING AND 2 TABLETS IN THE AFTERNOON
     Route: 048
     Dates: start: 20090902, end: 20120408
  2. METHOTREXATE SODIUM [Suspect]
     Dosage: 12.5 MG, 1X/WEEK
     Route: 048
     Dates: start: 20090401, end: 20120408
  3. PREDNISONE [Concomitant]
     Indication: RHEUMATOID ARTHRITIS
     Dosage: UNK
     Route: 048
  4. MOBIC [Concomitant]
  5. CIPROFLOXACIN [Concomitant]
  6. FLAGYL [Concomitant]
  7. PRILOSEC [Concomitant]
  8. MEFOXIN [Concomitant]
  9. FOLIC ACID [Concomitant]
  10. FISH OIL [Concomitant]

REACTIONS (1)
  - Colonic abscess [Recovered/Resolved]
